FAERS Safety Report 18737752 (Version 1)
Quarter: 2021Q1

REPORT INFORMATION
  Report Type: Report from Study
  Country: None (occurrence: US)
  Receive Date: 20210114
  Receipt Date: 20210114
  Transmission Date: 20210419
  Serious: Yes (Hospitalization)
  Sender: FDA-Public Use
  Company Number: US-ABBVIE-21K-163-3728227-00

PATIENT
  Sex: Male

DRUGS (3)
  1. HUMIRA [Suspect]
     Active Substance: ADALIMUMAB
     Indication: CROHN^S DISEASE
     Dosage: DAY 1 LOADING DOSE
     Route: 058
     Dates: start: 202011, end: 202011
  2. HUMIRA [Suspect]
     Active Substance: ADALIMUMAB
     Dosage: DAY 15 LOADING DOSE
     Route: 058
     Dates: start: 202011, end: 202011
  3. HUMIRA [Suspect]
     Active Substance: ADALIMUMAB
     Dosage: DAY 29 MAINTAINANCE DOSE THERE AFTER
     Route: 058
     Dates: start: 202012

REACTIONS (6)
  - Abdominal pain [Not Recovered/Not Resolved]
  - Cerebrospinal fluid leakage [Unknown]
  - Fall [Unknown]
  - Diarrhoea haemorrhagic [Not Recovered/Not Resolved]
  - Rectal haemorrhage [Not Recovered/Not Resolved]
  - Blood pressure decreased [Recovering/Resolving]

NARRATIVE: CASE EVENT DATE: 2020
